FAERS Safety Report 5763927-4 (Version None)
Quarter: 2008Q2

REPORT INFORMATION
  Report Type: 
  Country: None (occurrence: None)
  Receive Date: 20080602
  Receipt Date: 20070810
  Transmission Date: 20081010
  Serious: Yes (Life-Threatening, Hospitalization)
  Sender: FDA-Public Use
  Company Number: 07H-163-0313053-00

PATIENT
  Age: 81 Year
  Sex: Male
  Weight: 83.9154 kg

DRUGS (14)
  1. BUPIVACAINE [Suspect]
     Dosage: 6ML/HOUR, BOLUS, INTRATHECAL ; 1ML BOLUS W/15MIN LOCKOUT, 40ML/4HRS MAX, INTRATHECAL
     Route: 037
     Dates: start: 20070809, end: 20070809
  2. BUPIVACAINE [Suspect]
     Dosage: 6ML/HOUR, BOLUS, INTRATHECAL ; 1ML BOLUS W/15MIN LOCKOUT, 40ML/4HRS MAX, INTRATHECAL
     Route: 037
     Dates: start: 20070809, end: 20070809
  3. FENTANYL [Suspect]
     Dosage: 6ML/HOUR, BOLUS, INTRATHECAL ; 1ML BOLUS W/15MIN LOCKOUT, 40ML/4HRS MAX
     Route: 037
     Dates: start: 20070809, end: 20070809
  4. FENTANYL [Suspect]
     Dosage: 6ML/HOUR, BOLUS, INTRATHECAL ; 1ML BOLUS W/15MIN LOCKOUT, 40ML/4HRS MAX
     Route: 037
     Dates: start: 20070809, end: 20070809
  5. SODIUM CHLORIDE [Suspect]
     Dosage: 6ML/HOUR, BOLUS, INTRATHECAL ; 1ML BOLUS W/15MIN LOCKOUT, 40ML/4HRS MAX
     Route: 037
     Dates: start: 20070809, end: 20070809
  6. SODIUM CHLORIDE [Suspect]
     Dosage: 6ML/HOUR, BOLUS, INTRATHECAL ; 1ML BOLUS W/15MIN LOCKOUT, 40ML/4HRS MAX
     Route: 037
     Dates: start: 20070809, end: 20070809
  7. GLYBURIDE [Concomitant]
  8. POTASSIUM (POTASSIUM) [Concomitant]
  9. ANCEF [Concomitant]
  10. CAPTOPRIL [Concomitant]
  11. DIGOXIN [Concomitant]
  12. BETA PASTE [Concomitant]
  13. LR [Concomitant]
  14. SODIUM CHLORIDE [Suspect]
     Dosage: 6ML/HOUR, BOLUS, INTRATHECAL
     Route: 037

REACTIONS (2)
  - BLOOD PRESSURE DECREASED [None]
  - UNRESPONSIVE TO STIMULI [None]
